FAERS Safety Report 9525030 (Version 1)
Quarter: 2013Q3

REPORT INFORMATION
  Report Type: Spontaneous
  Country: US (occurrence: None)
  Receive Date: 20130913
  Receipt Date: 20130913
  Transmission Date: 20140515
  Serious: Yes (Death)
  Sender: FDA-Public Use
  Company Number: None

PATIENT
  Sex: Male

DRUGS (1)
  1. INLYTA [Suspect]
     Indication: RENAL CELL CARCINOMA
     Dosage: 2 TABS  BID  PO
     Route: 048
     Dates: start: 20130128, end: 20130912

REACTIONS (3)
  - Malignant neoplasm progression [None]
  - Unevaluable event [None]
  - Renal cell carcinoma [None]
